FAERS Safety Report 22213560 (Version 3)
Quarter: 2023Q2

REPORT INFORMATION
  Report Type: Report from Study
  Country: US (occurrence: None)
  Receive Date: 20230414
  Receipt Date: 20230615
  Transmission Date: 20230722
  Serious: Yes (Other)
  Sender: FDA-Public Use
  Company Number: US-ROCHE-3327499

PATIENT
  Sex: Female

DRUGS (3)
  1. PERTUZUMAB\TRASTUZUMAB [Suspect]
     Active Substance: PERTUZUMAB\TRASTUZUMAB
     Indication: Endometrial cancer
     Dosage: ON 10/MAR/2023 WAS THE CURRENT TREATMENT DATE.
     Route: 058
  2. CARBOPLATIN [Suspect]
     Active Substance: CARBOPLATIN
     Indication: Endometrial cancer
     Dosage: ON 10/MAR/2023 WAS THE CURRENT TREATMENT DATE.
     Route: 042
  3. PACLITAXEL [Suspect]
     Active Substance: PACLITAXEL
     Indication: Endometrial cancer
     Dosage: ON 10/MAR/2023 WAS THE CURRENT TREATMENT DATE.
     Route: 042

REACTIONS (2)
  - Hypokalaemia [Unknown]
  - Hyperkalaemia [Unknown]

NARRATIVE: CASE EVENT DATE: 20230129
